FAERS Safety Report 5125021-5 (Version None)
Quarter: 2006Q4

REPORT INFORMATION
  Report Type: 
  Country: None (occurrence: None)
  Receive Date: 20061010
  Receipt Date: 20061010
  Transmission Date: 20070319
  Serious: Yes (Hospitalization)
  Sender: FDA-Public Use
  Company Number: None

PATIENT
  Age: 67 Year
  Sex: Male

DRUGS (4)
  1. MORPHINE [Suspect]
     Indication: PAIN
     Dosage: 60 MG BID
     Dates: start: 19970701
  2. SALSALATE [Concomitant]
  3. TRAMADOL HCL [Concomitant]
  4. FINASTERIDE [Concomitant]

REACTIONS (1)
  - MENTAL STATUS CHANGES [None]
